FAERS Safety Report 6323926-0 (Version None)
Quarter: 2009Q3

REPORT INFORMATION
  Report Type: 
  Country: None (occurrence: None)
  Receive Date: 20090824
  Receipt Date: 20090812
  Transmission Date: 20100115
  Serious: Yes (Hospitalization)
  Sender: FDA-Public Use
  Company Number: A0735029A

PATIENT
  Age: 66 Year
  Sex: Female
  Weight: 46.8 kg

DRUGS (3)
  1. AVANDIA [Suspect]
     Dosage: 4MG TWICE PER DAY
     Route: 048
     Dates: start: 20030101, end: 20071003
  2. METFORMIN HCL [Concomitant]
  3. GLYBURIDE [Concomitant]

REACTIONS (1)
  - MYOCARDIAL INFARCTION [None]
